FAERS Safety Report 10154635 (Version 1)
Quarter: 2014Q2

REPORT INFORMATION
  Report Type: Spontaneous
  Country: US (occurrence: None)
  Receive Date: 20140502
  Receipt Date: 20140502
  Transmission Date: 20141212
  Serious: Yes (Hospitalization)
  Sender: FDA-Public Use
  Company Number: UTC-046878

PATIENT
  Age: 74 Year
  Sex: Female
  Weight: 98.88 kg

DRUGS (3)
  1. REMODULIN [Suspect]
     Indication: PULMONARY ARTERIAL HYPERTENSION
     Dosage: .019 UG/KG/MIN (0.19 UG/KG, 1 IN 1 MIN)
     Route: 058
     Dates: start: 20140227
  2. ADCIRCA [Concomitant]
  3. LETAIRIS [Concomitant]

REACTIONS (5)
  - Peripheral swelling [None]
  - Abdominal distension [None]
  - Tenderness [None]
  - Oedema peripheral [None]
  - Somnolence [None]
